FAERS Safety Report 12308542 (Version 1)
Quarter: 2016Q2

REPORT INFORMATION
  Report Type: Report from Study
  Country: CN (occurrence: CN)
  Receive Date: 20160427
  Receipt Date: 20160427
  Transmission Date: 20160815
  Serious: Yes (Death, Hospitalization)
  Sender: FDA-Public Use
  Company Number: CN-ROCHE-1530353

PATIENT
  Age: 75 Year
  Sex: Male
  Weight: 47 kg

DRUGS (1)
  1. AVASTIN [Suspect]
     Active Substance: BEVACIZUMAB
     Indication: RECTAL CANCER
     Route: 042
     Dates: start: 20140414, end: 20150113

REACTIONS (2)
  - Abdominal pain [Recovering/Resolving]
  - Gastrointestinal erosion [Fatal]

NARRATIVE: CASE EVENT DATE: 20150105
